FAERS Safety Report 7386946-3 (Version None)
Quarter: 2011Q1

REPORT INFORMATION
  Report Type: 
  Country: None (occurrence: None)
  Receive Date: 20110331
  Receipt Date: 20110323
  Transmission Date: 20110831
  Serious: Yes (Life-Threatening, Hospitalization, Other)
  Sender: FDA-Public Use
  Company Number: US-MILLENNIUM PHARMACEUTICALS, INC.-2010-04496

PATIENT
  Age: 70 Year
  Sex: Male
  Weight: 60 kg

DRUGS (22)
  1. ARA-C [Suspect]
     Indication: ACUTE MYELOID LEUKAEMIA
     Dosage: 100 MG/M2, CYCLIC
     Route: 042
     Dates: start: 20090714, end: 20090720
  2. REMERON [Concomitant]
     Indication: PRODUCT USED FOR UNKNOWN INDICATION
  3. VELCADE [Suspect]
     Dosage: 0.7 UNK, UNK
     Route: 042
     Dates: end: 20091113
  4. OXYCODONE [Concomitant]
     Indication: PRODUCT USED FOR UNKNOWN INDICATION
  5. AMBIEN [Concomitant]
     Indication: PRODUCT USED FOR UNKNOWN INDICATION
  6. DAUNORUBICIN [Suspect]
     Indication: ACUTE MYELOID LEUKAEMIA
     Dosage: 60 MG/M2, UNK
     Dates: start: 20090714, end: 20090716
  7. POTASSIUM CHLORIDE [Concomitant]
     Indication: PRODUCT USED FOR UNKNOWN INDICATION
  8. VELCADE [Suspect]
     Indication: ACUTE MYELOID LEUKAEMIA
     Dosage: 1.3 MG/M2, CYCLIC
     Route: 042
     Dates: start: 20090714, end: 20090724
  9. VELCADE [Suspect]
     Dosage: 0.7 MG/M2, UNK
     Route: 042
     Dates: start: 20090825, end: 20090904
  10. REGLAN [Concomitant]
     Indication: PRODUCT USED FOR UNKNOWN INDICATION
  11. MAGNESIUM OXIDE [Concomitant]
     Indication: PRODUCT USED FOR UNKNOWN INDICATION
  12. ARA-C [Suspect]
     Dosage: 2000 UNK, UNK
     Route: 042
     Dates: end: 20091107
  13. VITAMIN A [Concomitant]
     Indication: PRODUCT USED FOR UNKNOWN INDICATION
  14. LIDOCAINE W/PRILOCAINE [Concomitant]
     Indication: PRODUCT USED FOR UNKNOWN INDICATION
  15. VORICONAZOLE [Concomitant]
     Indication: PRODUCT USED FOR UNKNOWN INDICATION
  16. AVELOX [Concomitant]
     Indication: PRODUCT USED FOR UNKNOWN INDICATION
  17. ARA-C [Suspect]
     Dosage: 2000 MG/M2, CYCLIC
     Route: 042
     Dates: start: 20090825, end: 20090829
  18. PREVACID [Concomitant]
     Indication: PRODUCT USED FOR UNKNOWN INDICATION
     Dosage: UNK
  19. ACYCLOVIR [Concomitant]
     Indication: PRODUCT USED FOR UNKNOWN INDICATION
  20. SIMETHICONE [Concomitant]
     Indication: PRODUCT USED FOR UNKNOWN INDICATION
  21. TRAVATAN [Concomitant]
     Indication: PRODUCT USED FOR UNKNOWN INDICATION
  22. COLACE [Concomitant]
     Indication: PRODUCT USED FOR UNKNOWN INDICATION

REACTIONS (21)
  - FEBRILE NEUTROPENIA [None]
  - SEPSIS [None]
  - PNEUMONIA [None]
  - ASPARTATE AMINOTRANSFERASE [None]
  - ALANINE AMINOTRANSFERASE [None]
  - ELECTROCARDIOGRAM QT PROLONGED [None]
  - ACUTE RESPIRATORY DISTRESS SYNDROME [None]
  - HYPOXIA [None]
  - HYPOALBUMINAEMIA [None]
  - ACTIVATED PARTIAL THROMBOPLASTIN TIME [None]
  - RENAL FAILURE ACUTE [None]
  - HYPOTENSION [None]
  - ECHOCARDIOGRAM ABNORMAL [None]
  - HYPOCALCAEMIA [None]
  - ACIDOSIS [None]
  - HYPOPHOSPHATAEMIA [None]
  - URINARY TRACT INFECTION [None]
  - CAECITIS [None]
  - BLOOD ALKALINE PHOSPHATASE [None]
  - ALKALOSIS [None]
  - BLOOD BILIRUBIN [None]
